FAERS Safety Report 10028066 (Version 1)
Quarter: 2014Q1

REPORT INFORMATION
  Report Type: Spontaneous
  Country: US (occurrence: None)
  Receive Date: 20140304
  Receipt Date: 20140304
  Transmission Date: 20141002
  Serious: Yes (Other)
  Sender: FDA-Public Use
  Company Number: ADR-2010-9781

PATIENT
  Sex: Male

DRUGS (4)
  1. LIORESAL [Suspect]
     Indication: MUSCLE SPASTICITY
  2. MORPHINE [Suspect]
  3. DILAUDID [Suspect]
     Dosage: 0.3544 MG/DAY
  4. SALINE (PFNS) 1000MG/ML [Concomitant]

REACTIONS (5)
  - Somnolence [None]
  - Movement disorder [None]
  - Hypoaesthesia [None]
  - Paraesthesia [None]
  - Drug ineffective [None]
